FAERS Safety Report 21967396 (Version 4)
Quarter: 2024Q1

REPORT INFORMATION
  Report Type: Report from Study
  Country: JP (occurrence: JP)
  Receive Date: 20230208
  Receipt Date: 20240220
  Transmission Date: 20240410
  Serious: Yes (Hospitalization, Other)
  Sender: FDA-Public Use
  Company Number: JP-ONO-2022JP025848

PATIENT
  Age: 73 Year
  Sex: Female
  Weight: 69.2 kg

DRUGS (3)
  1. BRAFTOVI [Suspect]
     Active Substance: ENCORAFENIB
     Indication: Colon cancer
     Dosage: 300 MG, EVERYDAY
     Route: 048
     Dates: start: 20220721, end: 20220913
  2. MEKTOVI [Suspect]
     Active Substance: BINIMETINIB
     Indication: Colon cancer
     Dosage: 90 MG, EVERYDAY
     Route: 048
     Dates: start: 20220721, end: 20220913
  3. CETUXIMAB [Concomitant]
     Active Substance: CETUXIMAB
     Indication: Colon cancer
     Dosage: 500 MG/M2
     Route: 065
     Dates: start: 20220721, end: 20220908

REACTIONS (5)
  - Decreased appetite [Not Recovered/Not Resolved]
  - Muscular weakness [Not Recovered/Not Resolved]
  - Diarrhoea [Not Recovered/Not Resolved]
  - Dehydration [Unknown]
  - Renal impairment [Unknown]

NARRATIVE: CASE EVENT DATE: 20220909
